FAERS Safety Report 17315742 (Version 3)
Quarter: 2021Q1

REPORT INFORMATION
  Report Type: Spontaneous
  Country: US (occurrence: US)
  Receive Date: 20200124
  Receipt Date: 20210205
  Transmission Date: 20210419
  Serious: Yes (Hospitalization, Other)
  Sender: FDA-Public Use
  Company Number: US-CATALYST PHARMACEUTICALS, INC-2020CAT00018

PATIENT
  Age: 79 Year
  Sex: Male
  Weight: 82.54 kg

DRUGS (23)
  1. FLUOXETINE [Suspect]
     Active Substance: FLUOXETINE HYDROCHLORIDE
  2. PLAVIX [Concomitant]
     Active Substance: CLOPIDOGREL BISULFATE
  3. RANOLAZINE. [Concomitant]
     Active Substance: RANOLAZINE
  4. FIRDAPSE [Suspect]
     Active Substance: AMIFAMPRIDINE PHOSPHATE
     Dosage: 15 MG, 3X/DAY
     Route: 048
  5. FIRDAPSE [Suspect]
     Active Substance: AMIFAMPRIDINE PHOSPHATE
     Indication: MYASTHENIC SYNDROME
     Dosage: UNK (TITRATED DOSE)
     Route: 048
     Dates: start: 201912
  6. MAGNESIUM [Concomitant]
     Active Substance: MAGNESIUM
  7. POTASSIUM [Concomitant]
     Active Substance: POTASSIUM
  8. BABY ASPIRIN [Concomitant]
     Active Substance: ASPIRIN
  9. OMEPRAZOLE. [Concomitant]
     Active Substance: OMEPRAZOLE
  10. HIGH DOSE STEROIDS [Suspect]
     Active Substance: UNSPECIFIED INGREDIENT
     Dosage: UNK
     Route: 042
     Dates: start: 202001
  11. GLIPIZIDE. [Concomitant]
     Active Substance: GLIPIZIDE
  12. ZETIA [Concomitant]
     Active Substance: EZETIMIBE
  13. PYRIDIUM [Suspect]
     Active Substance: PHENAZOPYRIDINE
     Indication: URINARY TRACT INFECTION
     Dosage: UNK
     Route: 048
     Dates: start: 202002
  14. SCIG [Suspect]
     Active Substance: HUMAN IMMUNOGLOBULIN G
     Dosage: UNK
     Route: 058
  15. PREDNISONE. [Concomitant]
     Active Substance: PREDNISONE
  16. CALCIUM PLUS D3 [Concomitant]
  17. GABAPENTIN. [Concomitant]
     Active Substance: GABAPENTIN
  18. FIRDAPSE [Suspect]
     Active Substance: AMIFAMPRIDINE PHOSPHATE
     Dosage: 15 MG, 5X/DAY
     Route: 048
     Dates: end: 202012
  19. FIRDAPSE [Suspect]
     Active Substance: AMIFAMPRIDINE PHOSPHATE
     Dosage: SLOWLY TAPER OFF
     Route: 048
     Dates: start: 202012, end: 202101
  20. ANORO ELLIPTA [Concomitant]
     Active Substance: UMECLIDINIUM BROMIDE\VILANTEROL TRIFENATATE
  21. IVIG [Concomitant]
     Active Substance: HUMAN IMMUNOGLOBULIN G
     Route: 042
  22. UNSPECIFIED ANTIHISTAMINE [Concomitant]
     Active Substance: ANTIHISTAMINES NOS
  23. ^ICIG^ [Concomitant]

REACTIONS (22)
  - Adrenal insufficiency [Not Recovered/Not Resolved]
  - Device related infection [Unknown]
  - Fatigue [Not Recovered/Not Resolved]
  - Headache [Not Recovered/Not Resolved]
  - Performance status decreased [Not Recovered/Not Resolved]
  - Anaphylactic shock [Recovered/Resolved with Sequelae]
  - Chromaturia [Not Recovered/Not Resolved]
  - Urine output decreased [Unknown]
  - Pyrexia [Unknown]
  - Angina pectoris [Not Recovered/Not Resolved]
  - Pulmonary oedema [Unknown]
  - Heart rate increased [Unknown]
  - Balance disorder [Unknown]
  - Asthenia [Not Recovered/Not Resolved]
  - Back pain [Not Recovered/Not Resolved]
  - Pneumonia [Unknown]
  - Hypotension [Not Recovered/Not Resolved]
  - Urinary tract infection [Not Recovered/Not Resolved]
  - Vasospasm [Unknown]
  - Transfusion-related acute lung injury [Unknown]
  - Hypoglycaemia [Not Recovered/Not Resolved]
  - Drug ineffective [Recovered/Resolved]

NARRATIVE: CASE EVENT DATE: 201912
